FAERS Safety Report 7250746-5 (Version None)
Quarter: 2011Q1

REPORT INFORMATION
  Report Type: 
  Country: None (occurrence: None)
  Receive Date: 20110128
  Receipt Date: 20110119
  Transmission Date: 20110831
  Serious: Yes (Hospitalization)
  Sender: FDA-Public Use
  Company Number: US-ASTRAZENECA-2011SE03366

PATIENT
  Age: 618 Month
  Sex: Male
  Weight: 108.9 kg

DRUGS (3)
  1. CRESTOR [Suspect]
     Indication: HYPERCHOLESTEROLAEMIA
     Route: 048
     Dates: start: 20100301, end: 20100901
  2. PLAVIX [Concomitant]
  3. NITROGLYCERIN [Concomitant]
     Dosage: AS REQUIRED.

REACTIONS (3)
  - PAIN [None]
  - ASTHENIA [None]
  - MYALGIA [None]
